FAERS Safety Report 6227308-1 (Version None)
Quarter: 2009Q2

REPORT INFORMATION
  Report Type: 
  Country: None (occurrence: None)
  Receive Date: 20090612
  Receipt Date: 20090608
  Transmission Date: 20091009
  Serious: Yes (Hospitalization, Other)
  Sender: FDA-Public Use
  Company Number: US-ABBOTT-09P-163-0578454-00

PATIENT
  Sex: Male
  Weight: 68.1 kg

DRUGS (1)
  1. ADVICOR [Suspect]
     Indication: DRUG USE FOR UNKNOWN INDICATION
     Dates: start: 20081101, end: 20081201

REACTIONS (4)
  - ASTHENIA [None]
  - BONE PAIN [None]
  - CHEST PAIN [None]
  - MYALGIA [None]
